FAERS Safety Report 5203839-8 (Version None)
Quarter: 2007Q1

REPORT INFORMATION
  Report Type: 
  Country: None (occurrence: None)
  Receive Date: 20070105
  Receipt Date: 20061222
  Transmission Date: 20070707
  Serious: Yes (Hospitalization, Disabling, Other)
  Sender: FDA-Public Use
  Company Number: 2006-03014

PATIENT
  Age: 57 Year
  Sex: Male
  Weight: 65.4 kg

DRUGS (8)
  1. VELCADE [Suspect]
     Indication: MULTIPLE MYELOMA
     Dosage: 1.30 MG/M2, INTRAVENOUS; 1.70 MG, INTRAVENOUS
     Route: 042
     Dates: start: 20060711, end: 20060804
  2. VELCADE [Suspect]
     Indication: MULTIPLE MYELOMA
     Dosage: 1.30 MG/M2, INTRAVENOUS; 1.70 MG, INTRAVENOUS
     Route: 042
     Dates: start: 20060825, end: 20060901
  3. ALOXI [Concomitant]
  4. ZOMETA [Concomitant]
  5. ARANESP [Concomitant]
  6. PHENERGAN (PROMETHAZINE HYDROCHLORIDE) [Concomitant]
  7. EMLA CREAM (LIDOCAINE, PRILOCAINE) [Concomitant]
  8. DIFLUCAN [Concomitant]

REACTIONS (10)
  - ANAEMIA [None]
  - DECREASED APPETITE [None]
  - DEEP VEIN THROMBOSIS [None]
  - DRUG TOXICITY [None]
  - HYPOKALAEMIA [None]
  - IIIRD NERVE PARALYSIS [None]
  - MENINGITIS CRYPTOCOCCAL [None]
  - NEURALGIA [None]
  - NEUROPATHY PERIPHERAL [None]
  - WEIGHT DECREASED [None]
